FAERS Safety Report 18695751 (Version 1)
Quarter: 2021Q1

REPORT INFORMATION
  Report Type: Spontaneous
  Country: US (occurrence: US)
  Receive Date: 20210104
  Receipt Date: 20210104
  Transmission Date: 20210419
  Serious: Yes (Disabling)
  Sender: FDA-Public Use
  Company Number: None

PATIENT
  Age: 34 Year
  Sex: Female
  Weight: 57.61 kg

DRUGS (1)
  1. MIRENA [Suspect]
     Active Substance: LEVONORGESTREL

REACTIONS (5)
  - Muscle spasms [None]
  - Depressed level of consciousness [None]
  - Oligomenorrhoea [None]
  - Pain [None]
  - Headache [None]

NARRATIVE: CASE EVENT DATE: 20190808
